FAERS Safety Report 5740104-4 (Version None)
Quarter: 2008Q2

REPORT INFORMATION
  Report Type: 
  Country: None (occurrence: None)
  Receive Date: 20080513
  Receipt Date: 20080428
  Transmission Date: 20081010
  Serious: Yes (Death)
  Sender: FDA-Public Use
  Company Number: 2008S1007236

PATIENT
  Age: 55 Year
  Sex: Male

DRUGS (2)
  1. INDOMETHACIN [Suspect]
     Indication: BACK PAIN
     Dosage: 75 MG; 3 TIMES A DAY;
  2. MORPHINE [Concomitant]

REACTIONS (4)
  - FISTULA [None]
  - GASTRIC ULCER HAEMORRHAGE [None]
  - HYPOVOLAEMIC SHOCK [None]
  - VENTRICULAR FIBRILLATION [None]
